FAERS Safety Report 20109328 (Version 1)
Quarter: 2021Q4

REPORT INFORMATION
  Report Type: Spontaneous
  Country: US (occurrence: None)
  Receive Date: 20211124
  Receipt Date: 20211124
  Transmission Date: 20220303
  Serious: Yes (Other)
  Sender: FDA-Public Use
  Company Number: None

PATIENT
  Age: 32 Year
  Sex: Female
  Weight: 112.5 kg

DRUGS (12)
  1. PRISTIQ EXTENDED-RELEASE [Suspect]
     Active Substance: DESVENLAFAXINE SUCCINATE
     Indication: Major depression
     Dosage: FREQUENCY : DAILY;?
     Route: 048
     Dates: start: 20180620, end: 20180815
  2. WELLBUTRIN XL [Suspect]
     Active Substance: BUPROPION HYDROCHLORIDE
     Indication: Major depression
     Dosage: FREQUENCY : DAILY;?
     Route: 048
     Dates: start: 20180815
  3. Wellbutrin XL 300mg 1 tab PO QAM [Concomitant]
     Dates: start: 20181011, end: 20190221
  4. Cymbalta 30mg 1 tab PO QAM [Concomitant]
     Dates: start: 20181011, end: 20181031
  5. Zoloft 50mg 1 tab PO QDAY [Concomitant]
     Dates: start: 20190125, end: 20190221
  6. Aplenzin 522mg PO QAM [Concomitant]
     Dates: start: 20190221, end: 20190312
  7. Zoloft 100mg 1 tab PO QDAY [Concomitant]
     Dates: start: 20190221, end: 20201102
  8. Rexulti1mg 1 tab PO QAM [Concomitant]
     Dates: start: 20190401, end: 20201102
  9. Abilify 5mg 1 tab PO QDAY [Concomitant]
     Dates: start: 20201102, end: 20211101
  10. Lamictal 100mg 1 tab PO QDAY [Concomitant]
     Dates: start: 20210629
  11. Fetzima 40mg 1mg PO QAM [Concomitant]
     Dates: start: 20211101, end: 20211122
  12. Sunosi 75mg 1 tab PO QAM [Concomitant]
     Dates: start: 20211122

REACTIONS (4)
  - Therapy non-responder [None]
  - Condition aggravated [None]
  - Dehydration [None]
  - Teeth brittle [None]

NARRATIVE: CASE EVENT DATE: 20211122
